FAERS Safety Report 9456900 (Version 1)
Quarter: 2013Q3

REPORT INFORMATION
  Report Type: Report from Study
  Country: US (occurrence: US)
  Receive Date: 20130813
  Receipt Date: 20130813
  Transmission Date: 20140515
  Serious: Yes (Other)
  Sender: FDA-Public Use
  Company Number: US-ROCHE-1260333

PATIENT
  Sex: Male

DRUGS (2)
  1. AVASTIN [Suspect]
     Indication: RETINAL OEDEMA
     Route: 065
  2. AVASTIN [Suspect]
     Indication: OFF LABEL USE

REACTIONS (7)
  - Macular oedema [Unknown]
  - Vitreous detachment [Unknown]
  - Vision blurred [Unknown]
  - Vitreous floaters [Unknown]
  - Visual field defect [Unknown]
  - Retinal vein occlusion [Unknown]
  - Retinal haemorrhage [Unknown]
